FAERS Safety Report 7511639-9 (Version None)
Quarter: 2011Q2

REPORT INFORMATION
  Report Type: 
  Country: None (occurrence: None)
  Receive Date: 20110531
  Receipt Date: 20110524
  Transmission Date: 20111010
  Serious: Yes (Other)
  Sender: FDA-Public Use
  Company Number: US-PFIZER INC-2011072398

PATIENT
  Sex: Female
  Weight: 118 kg

DRUGS (18)
  1. DIOVAN [Concomitant]
     Indication: RENAL FAILURE CHRONIC
     Dosage: UNK
  2. ZAROXOLYN [Concomitant]
     Indication: HYPERTENSION
     Dosage: UNK
  3. NIZATIDINE [Concomitant]
     Indication: GASTROOESOPHAGEAL REFLUX DISEASE
     Dosage: UNK
  4. CLONAZEPAM [Concomitant]
     Dosage: UNK
  5. COLESTID [Suspect]
     Dosage: ONE AND ONE-HALF SCOOP
     Route: 048
     Dates: start: 20110301, end: 20110301
  6. AMILORIDE [Concomitant]
     Dosage: UNK
  7. ZYRTEC [Concomitant]
     Indication: HYPERSENSITIVITY
     Dosage: UNK
  8. LIPITOR [Suspect]
     Indication: BLOOD CHOLESTEROL INCREASED
     Dosage: UNK
     Dates: start: 20100101
  9. PAMELOR [Concomitant]
     Dosage: UNK
  10. SULFINPYRAZONE [Concomitant]
     Dosage: UNK
  11. TOPAMAX [Concomitant]
     Dosage: UNK
  12. WELCHOL [Suspect]
     Indication: BLOOD CHOLESTEROL INCREASED
     Dosage: UNK
     Dates: start: 20110301
  13. TENORMIN [Concomitant]
     Indication: CARDIAC DISORDER
     Dosage: UNK
  14. SYNTHROID [Concomitant]
     Indication: HYPOTHYROIDISM
     Dosage: UNK
  15. HYOSOPHEN [Concomitant]
     Dosage: UNK
  16. COLESTID [Suspect]
     Indication: BLOOD CHOLESTEROL INCREASED
     Dosage: UNK
     Route: 048
     Dates: start: 20110301
  17. AMARYL [Concomitant]
     Indication: DIABETES MELLITUS
     Dosage: UNK
  18. MAGNESIUM OXIDE [Concomitant]
     Dosage: UNK

REACTIONS (7)
  - CHOKING [None]
  - LIVER DISORDER [None]
  - RETCHING [None]
  - MUSCLE DISORDER [None]
  - BLOOD CHOLESTEROL INCREASED [None]
  - BLOOD ALKALINE PHOSPHATASE INCREASED [None]
  - MUSCLE SPASMS [None]
